FAERS Safety Report 22324889 (Version 5)
Quarter: 2024Q1

REPORT INFORMATION
  Report Type: Spontaneous
  Country: US (occurrence: US)
  Receive Date: 20230516
  Receipt Date: 20240122
  Transmission Date: 20240410
  Serious: No
  Sender: FDA-Public Use
  Company Number: US-PFIZER INC-PV202300086335

PATIENT
  Age: 15 Year
  Sex: Male
  Weight: 57.596 kg

DRUGS (3)
  1. OXBRYTA [Suspect]
     Active Substance: VOXELOTOR
     Indication: Sickle cell disease
     Dosage: 500MG/3 TABLETS (TOTAL 1500 MG) ONCE DAILY
     Route: 048
  2. OXBRYTA [Suspect]
     Active Substance: VOXELOTOR
     Dosage: UNK
  3. HYDROX [Concomitant]
     Dosage: UNK

REACTIONS (1)
  - Blood test abnormal [Recovering/Resolving]
